FAERS Safety Report 5647092-X (Version None)
Quarter: 2008Q1

REPORT INFORMATION
  Report Type: 
  Country: None (occurrence: None)
  Receive Date: 20080303
  Receipt Date: 20080218
  Transmission Date: 20080703
  Serious: Yes (Hospitalization)
  Sender: FDA-Public Use
  Company Number: DE-JNJFOC-20080206988

PATIENT
  Sex: Female

DRUGS (32)
  1. TRAMAL [Suspect]
     Indication: PAIN
     Route: 048
  2. TRAMAL LONG [Suspect]
     Indication: PAIN
     Route: 048
  3. BERLOSIN [Suspect]
     Indication: PAIN
     Route: 048
  4. FRAXIPARIN [Concomitant]
     Route: 065
  5. DILANACIN [Concomitant]
     Route: 065
  6. FERRO DUODENAL [Concomitant]
     Route: 065
  7. ARLEVERT [Concomitant]
     Route: 065
  8. PENTAERYTHRITOL TETRANITRATE [Concomitant]
     Route: 065
  9. MULTI-VITAMIN [Concomitant]
     Route: 065
  10. RADEDORM [Concomitant]
     Route: 065
  11. ACETAMINOPHEN [Concomitant]
     Route: 065
  12. NOVALGIN [Concomitant]
     Route: 065
  13. EMBOLEX [Concomitant]
     Route: 065
  14. CHLORAL HYDRATE [Concomitant]
     Route: 065
  15. NEXIUM [Concomitant]
     Route: 065
  16. BELOC ZOC [Concomitant]
     Route: 065
  17. MEGALAC [Concomitant]
     Route: 065
  18. MCP [Concomitant]
     Route: 065
  19. ZITHROMAX [Concomitant]
     Route: 065
  20. ACETYLCYSTEINE [Concomitant]
     Route: 065
  21. ATROVENT [Concomitant]
     Route: 065
  22. SULTANOL [Concomitant]
     Route: 065
  23. THEOPHYLLINE [Concomitant]
     Route: 065
  24. ACETAMINOPHEN [Concomitant]
     Route: 065
  25. CAMOMILE [Concomitant]
     Route: 065
  26. TORSEMIDE [Concomitant]
     Route: 065
  27. AMBROXOL [Concomitant]
     Route: 065
  28. KALINOR [Concomitant]
     Route: 065
  29. KLACID [Concomitant]
     Route: 065
  30. CETIRIZINE HCL [Concomitant]
     Route: 065
  31. DIMENHYDRINATE [Concomitant]
     Route: 065
  32. AMPHO MORONAL [Concomitant]
     Route: 065

REACTIONS (1)
  - STEVENS-JOHNSON SYNDROME [None]
